FAERS Safety Report 4331872-7 (Version None)
Quarter: 2004Q2

REPORT INFORMATION
  Report Type: 
  Country: None (occurrence: None)
  Receive Date: 20040405
  Receipt Date: 20040129
  Transmission Date: 20050107
  Serious: No
  Sender: FDA-Public Use
  Company Number: US-GLAXOSMITHKLINE-A0495693A

PATIENT
  Age: 77 Year
  Sex: Male

DRUGS (1)
  1. CUTIVATE [Suspect]
     Dates: start: 20040109, end: 20040115

REACTIONS (2)
  - ILL-DEFINED DISORDER [None]
  - ONYCHORRHEXIS [None]
